FAERS Safety Report 9433606 (Version 4)
Quarter: 2014Q2

REPORT INFORMATION
  Report Type: Spontaneous
  Country: IT (occurrence: IT)
  Receive Date: 20130731
  Receipt Date: 20140402
  Transmission Date: 20141212
  Serious: Yes (Other)
  Sender: FDA-Public Use
  Company Number: IT-VERTEX PHARMACEUTICALS INC-2013-008449

PATIENT
  Age: 58 Year
  Sex: Male
  Weight: 60 kg

DRUGS (3)
  1. INCIVO [Suspect]
     Indication: CHRONIC HEPATITIS C
     Dosage: 2250 MG, UNK
     Route: 048
     Dates: start: 20130607, end: 20130722
  2. PEGASYS [Concomitant]
     Indication: CHRONIC HEPATITIS C
     Dosage: 135 ?G, QW
     Route: 058
     Dates: start: 20130607, end: 20130722
  3. REBETOL [Concomitant]
     Indication: CHRONIC HEPATITIS C
     Dosage: 600 MG, UNK
     Route: 048
     Dates: start: 20130607, end: 20130722

REACTIONS (4)
  - Dermatitis [Recovered/Resolved]
  - Rash erythematous [Unknown]
  - Anaemia [Unknown]
  - Off label use [Unknown]
